FAERS Safety Report 4415956-0 (Version None)
Quarter: 2004Q3

REPORT INFORMATION
  Report Type: 
  Country: None (occurrence: None)
  Receive Date: 20040804
  Receipt Date: 20040804
  Transmission Date: 20050211
  Serious: Yes (Hospitalization)
  Sender: FDA-Public Use
  Company Number: None

PATIENT
  Age: 60 Year
  Sex: Male
  Weight: 99.3377 kg

DRUGS (5)
  1. ZOLADEX [Suspect]
     Indication: PROSTATE CANCER
     Dosage: 3.6 MG
  2. CHEMOTHERAPY TREATMENT [Concomitant]
  3. FLOMAX [Concomitant]
  4. LISINOPRIL [Concomitant]
  5. TRICOR [Concomitant]

REACTIONS (8)
  - BACK PAIN [None]
  - BODY TEMPERATURE INCREASED [None]
  - CHEST PAIN [None]
  - CHILLS [None]
  - DYSPNOEA [None]
  - FATIGUE [None]
  - PULMONARY EMBOLISM [None]
  - WHITE BLOOD CELL COUNT INCREASED [None]
